FAERS Safety Report 8143379-X (Version None)
Quarter: 2012Q1

REPORT INFORMATION
  Report Type: 
  Country: None (occurrence: None)
  Receive Date: 20120217
  Receipt Date: 20120207
  Transmission Date: 20120608
  Serious: Yes (Other)
  Sender: FDA-Public Use
  Company Number: CA-JNJFOC-20120206792

PATIENT
  Sex: Female
  Weight: 50 kg

DRUGS (4)
  1. REMICADE [Suspect]
     Route: 042
     Dates: start: 20120207
  2. BENADRYL [Concomitant]
     Route: 042
  3. REMICADE [Suspect]
     Indication: COLITIS ULCERATIVE
     Route: 042
     Dates: start: 20110725
  4. ACETAMINOPHEN [Concomitant]
     Dosage: DOSE: 1000 (UNITS UNSPECIFIED)
     Route: 048

REACTIONS (5)
  - DYSPHONIA [None]
  - HYPERSENSITIVITY [None]
  - INFUSION RELATED REACTION [None]
  - DYSPHAGIA [None]
  - THROAT TIGHTNESS [None]
